FAERS Safety Report 18356685 (Version 1)
Quarter: 2020Q4

REPORT INFORMATION
  Report Type: Spontaneous
  Country: US (occurrence: US)
  Receive Date: 20201007
  Receipt Date: 20201007
  Transmission Date: 20210114
  Serious: No
  Sender: FDA-Public Use
  Company Number: US-SPROUT PHARMACEUTICALS, INC.-2020SP000117

PATIENT
  Age: 26 Year
  Sex: Female
  Weight: 58.11 kg

DRUGS (2)
  1. COPPER IUD [Concomitant]
     Active Substance: COPPER
     Indication: PRODUCT USED FOR UNKNOWN INDICATION
  2. ADDYI [Suspect]
     Active Substance: FLIBANSERIN
     Indication: LIBIDO DECREASED
     Route: 048
     Dates: start: 20200114

REACTIONS (5)
  - Vulvovaginal mycotic infection [Unknown]
  - Intentional dose omission [Recovered/Resolved]
  - Metrorrhagia [Recovered/Resolved]
  - Coital bleeding [Recovered/Resolved]
  - Menstruation delayed [Recovered/Resolved]

NARRATIVE: CASE EVENT DATE: 20200723
